FAERS Safety Report 6587600-8 (Version None)
Quarter: 2010Q1

REPORT INFORMATION
  Report Type: 
  Country: None (occurrence: None)
  Receive Date: 20100218
  Receipt Date: 20100215
  Transmission Date: 20100710
  Serious: Yes (Hospitalization)
  Sender: FDA-Public Use
  Company Number: US-TEVA-222495USA

PATIENT
  Sex: Female

DRUGS (3)
  1. LANSOPRAZOLE DELAYED RELEASE CAPSULES USP, 15MG AND 30MG [Suspect]
     Route: 048
     Dates: start: 20100101, end: 20100106
  2. CLOPIDOGREL [Concomitant]
  3. IRON [Concomitant]

REACTIONS (3)
  - DIARRHOEA [None]
  - GASTRIC POLYPS [None]
  - GASTROINTESTINAL HAEMORRHAGE [None]
